FAERS Safety Report 12968470 (Version 3)
Quarter: 2017Q2

REPORT INFORMATION
  Report Type: Spontaneous
  Country: US (occurrence: US)
  Receive Date: 20161123
  Receipt Date: 20170421
  Transmission Date: 20170830
  Serious: No
  Sender: FDA-Public Use
  Company Number: US-009507513-1610USA013397

PATIENT
  Age: 13 Year
  Sex: Female
  Weight: 49.89 kg

DRUGS (10)
  1. NEXPLANON [Suspect]
     Active Substance: ETONOGESTREL
     Indication: CONTRACEPTION
     Dosage: 68 MG, IMPLANT
     Route: 059
     Dates: start: 20161209
  2. ZYRTEC [Concomitant]
     Active Substance: CETIRIZINE HYDROCHLORIDE
     Dosage: UNK
  3. ADVIL [Concomitant]
     Active Substance: IBUPROFEN
     Dosage: UNK
  4. FLONASE [Concomitant]
     Active Substance: FLUTICASONE PROPIONATE
     Dosage: UNK
  5. ZANTAC [Concomitant]
     Active Substance: RANITIDINE HYDROCHLORIDE
     Dosage: UNK
  6. NEXPLANON [Suspect]
     Active Substance: ETONOGESTREL
     Indication: MENSTRUAL DISORDER
  7. ANTIVERT [Concomitant]
     Active Substance: MECLIZINE HYDROCHLORIDE
     Dosage: UNK
  8. NEXPLANON [Suspect]
     Active Substance: ETONOGESTREL
     Indication: UTERINE HAEMORRHAGE
     Dosage: 68 MG IMPLANT
     Route: 059
     Dates: start: 20160506, end: 20161209
  9. FLOVENT [Concomitant]
     Active Substance: FLUTICASONE PROPIONATE
     Dosage: UNK
  10. ALBUTEROL SULFATE. [Concomitant]
     Active Substance: ALBUTEROL SULFATE
     Indication: ASTHMA
     Dosage: 2 PUFF, EVERY 4 HOURS PRN (90 MICROGRAMS)
     Route: 048
     Dates: start: 20160222

REACTIONS (11)
  - Migration of implanted drug [Recovered/Resolved]
  - Discomfort [Not Recovered/Not Resolved]
  - Device deployment issue [Recovered/Resolved]
  - Implant site erythema [Unknown]
  - Vulvovaginal discomfort [Unknown]
  - Device expulsion [Recovered/Resolved]
  - Scab [Unknown]
  - Implant site pain [Recovered/Resolved]
  - Implant site induration [Unknown]
  - Product use in unapproved indication [Unknown]
  - Pain [Not Recovered/Not Resolved]

NARRATIVE: CASE EVENT DATE: 2016
